FAERS Safety Report 10441795 (Version 2)
Quarter: 2015Q2

REPORT INFORMATION
  Report Type: Spontaneous
  Country: IT (occurrence: IT)
  Receive Date: 20140908
  Receipt Date: 20150515
  Transmission Date: 20150821
  Serious: Yes (Other)
  Sender: FDA-Public Use
  Company Number: IT-PFIZER INC-2014245400

PATIENT
  Age: 83 Year
  Sex: Male

DRUGS (2)
  1. CARDURA [Suspect]
     Active Substance: DOXAZOSIN MESYLATE
     Indication: HYPERTENSION
     Dosage: 1 DF, SINGLE
     Route: 048
     Dates: start: 20140821, end: 20140821
  2. DIURESIX [Concomitant]
     Active Substance: TORSEMIDE
     Dosage: UNK

REACTIONS (4)
  - Syncope [Recovering/Resolving]
  - Nausea [Recovering/Resolving]
  - Heart rate decreased [Recovering/Resolving]
  - Ischaemia [Unknown]

NARRATIVE: CASE EVENT DATE: 20140821
